FAERS Safety Report 14587120 (Version 1)
Quarter: 2018Q1

REPORT INFORMATION
  Report Type: Spontaneous
  Country: AT (occurrence: AT)
  Receive Date: 20180301
  Receipt Date: 20180301
  Transmission Date: 20180509
  Serious: Yes (Other)
  Sender: FDA-Public Use
  Company Number: AT-PFIZER INC-2018082644

PATIENT
  Age: 55 Year
  Sex: Female
  Weight: 72 kg

DRUGS (4)
  1. SERACTIL FORTE [Concomitant]
     Dates: start: 20180124, end: 20180124
  2. PANTOGAR [Concomitant]
     Active Substance: AMINOBENZOIC ACID\CALCIUM PANTOTHENATE\CYSTINE\KERATIN\THIAMINE MONONITRATE
  3. DALACIN C [Suspect]
     Active Substance: CLINDAMYCIN PHOSPHATE
     Dosage: 900 MG, DAILY
     Dates: start: 20180123, end: 20180127
  4. VITAMIN B [Concomitant]
     Active Substance: VITAMIN B

REACTIONS (6)
  - Major depression [Unknown]
  - Decreased appetite [Unknown]
  - Dizziness [Unknown]
  - Psychomotor retardation [Unknown]
  - Disturbance in attention [Unknown]
  - Depersonalisation/derealisation disorder [Unknown]

NARRATIVE: CASE EVENT DATE: 20180125
